FAERS Safety Report 23726574 (Version 2)
Quarter: 2024Q2

REPORT INFORMATION
  Report Type: Other
  Country: US (occurrence: US)
  Receive Date: 20240410
  Receipt Date: 20240520
  Transmission Date: 20240716
  Serious: Yes (Hospitalization, Other)
  Sender: FDA-Public Use
  Company Number: US-INTERCEPT-PM2024000694

PATIENT
  Age: 79 Year
  Sex: Female
  Weight: 67.574 kg

DRUGS (12)
  1. OCALIVA [Suspect]
     Active Substance: OBETICHOLIC ACID
     Indication: Primary biliary cholangitis
     Dosage: 10 MILLIGRAM, QD
     Route: 048
     Dates: start: 20230420
  2. CEFDINIR [Concomitant]
     Active Substance: CEFDINIR
     Dosage: 300 MILLIGRAM, BID
     Route: 048
     Dates: start: 20230722
  3. ROBITUSSIN AC [CODEINE PHOSPHATE;GUAIFENESIN] [Concomitant]
     Indication: Cough
     Dosage: 15 MILLILITER, Q4H
     Route: 048
     Dates: start: 20230722
  4. SYNTHROID [Concomitant]
     Active Substance: LEVOTHYROXINE SODIUM
     Indication: Hypothyroidism
     Dosage: 50 MICROGRAM, QD, BFF
     Route: 048
  5. ADALAT CC [Concomitant]
     Active Substance: NIFEDIPINE
     Dosage: 30 MILLIGRAM, QD
     Route: 048
  6. VOLTAREN [Concomitant]
     Active Substance: DICLOFENAC SODIUM
     Indication: Pain in extremity
     Dosage: 1 TOPICAL APPLICATION, 4 TIMES A DAY AS NEEDED
     Route: 061
  7. PRINIVIL [Concomitant]
     Active Substance: LISINOPRIL
     Indication: Hypertension
     Dosage: 20 MILLIGRAM, QD
     Route: 048
  8. PRINIVIL [Concomitant]
     Active Substance: LISINOPRIL
     Dosage: 2.5 MILLIGRAM, QD
     Route: 048
  9. PLAVIX [Concomitant]
     Active Substance: CLOPIDOGREL BISULFATE
     Dosage: 75 MILLIGRAM, QD
     Route: 048
  10. ASPIRIN [Concomitant]
     Active Substance: ASPIRIN
     Dosage: 81 MILLIGRAM, QD
     Route: 048
  11. LIPITOR [Concomitant]
     Active Substance: ATORVASTATIN CALCIUM
     Dosage: 40 MILLIGRAM, QD
     Route: 048
  12. NEURONTIN [Concomitant]
     Active Substance: GABAPENTIN
     Indication: Pain
     Dosage: 100 MILLIGRAM, EVERY 12 HRS AS NEEDED
     Route: 048

REACTIONS (12)
  - Lacunar infarction [Unknown]
  - Cerebrovascular accident [Not Recovered/Not Resolved]
  - Encephalopathy [Unknown]
  - Pulmonary fibrosis [Unknown]
  - Cerebral microhaemorrhage [Unknown]
  - Cerebral atrophy [Unknown]
  - ECG signs of myocardial ischaemia [Unknown]
  - Atelectasis [Unknown]
  - Hyponatraemia [Recovered/Resolved]
  - Klebsiella urinary tract infection [Unknown]
  - Hypotension [Unknown]
  - Blood glucose increased [Unknown]

NARRATIVE: CASE EVENT DATE: 20240301
